FAERS Safety Report 24454011 (Version 2)
Quarter: 2024Q4

REPORT INFORMATION
  Report Type: Spontaneous
  Country: CN (occurrence: CN)
  Receive Date: 20241017
  Receipt Date: 20241018
  Transmission Date: 20250115
  Serious: No
  Sender: ROCHE
  Company Number: CN-ROCHE-3469536

PATIENT
  Age: 72 Year
  Sex: Male
  Weight: 70.0 kg

DRUGS (2)
  1. MABTHERA [Suspect]
     Active Substance: RITUXIMAB
     Indication: Non-Hodgkin^s lymphoma
     Dosage: INJECTION
     Route: 041
     Dates: start: 20231110, end: 20231110
  2. MABTHERA [Suspect]
     Active Substance: RITUXIMAB
     Dosage: INJECTION
     Route: 041
     Dates: start: 20231110, end: 20231110

REACTIONS (1)
  - Alopecia [Unknown]

NARRATIVE: CASE EVENT DATE: 20231110
